FAERS Safety Report 8973357 (Version 1)
Quarter: 2012Q4

REPORT INFORMATION
  Report Type: 
  Country: US (occurrence: US)
  Receive Date: 20121219
  Receipt Date: 20121219
  Transmission Date: 20130627
  Serious: No
  Sender: FDA-Public Use
  Company Number: US-B.I. PHARMACEUTICALS,INC./RIDGEFIELD-2012-BI-03040BP

PATIENT
  Age: 62 Year
  Sex: Female

DRUGS (11)
  1. SPIRIVA [Suspect]
     Indication: CHRONIC OBSTRUCTIVE PULMONARY DISEASE
     Dosage: 18 mcg
     Route: 055
  2. SPIRIVA [Suspect]
     Dosage: 10 mg
     Route: 048
     Dates: start: 20121210, end: 20121210
  3. ATIVAN [Concomitant]
     Route: 048
  4. ADVAIR [Concomitant]
     Route: 055
  5. PERCOCET [Concomitant]
     Route: 048
  6. LEVOTHYROXINE [Concomitant]
     Route: 048
  7. AMBIEN [Concomitant]
     Route: 048
  8. LEXAPRO [Concomitant]
     Route: 048
  9. AMITRIPTYLINE [Concomitant]
     Route: 048
  10. PROAIR [Concomitant]
     Route: 055
  11. OMEPRAZOLE [Concomitant]
     Route: 048

REACTIONS (2)
  - Insomnia [Recovered/Resolved]
  - Incorrect route of drug administration [Recovered/Resolved]
